FAERS Safety Report 6146150-3 (Version None)
Quarter: 2009Q2

REPORT INFORMATION
  Report Type: 
  Country: None (occurrence: None)
  Receive Date: 20090407
  Receipt Date: 20090401
  Transmission Date: 20091009
  Serious: Yes (Hospitalization)
  Sender: FDA-Public Use
  Company Number: FR-WYE-G03436609

PATIENT
  Sex: Male
  Weight: 12.5 kg

DRUGS (1)
  1. ADVIL [Suspect]
     Indication: PYREXIA
     Dosage: UNKNOWN
     Route: 048
     Dates: start: 20090115, end: 20090101

REACTIONS (3)
  - ASTHENIA [None]
  - HAEMOLYTIC URAEMIC SYNDROME [None]
  - WEIGHT DECREASED [None]
